FAERS Safety Report 5652343-1 (Version None)
Quarter: 2008Q1

REPORT INFORMATION
  Report Type: 
  Country: None (occurrence: None)
  Receive Date: 20080305
  Receipt Date: 20080305
  Transmission Date: 20080703
  Serious: Yes (Disabling)
  Sender: FDA-Public Use
  Company Number: None

PATIENT
  Age: 42 Year
  Sex: Female
  Weight: 54.4316 kg

DRUGS (2)
  1. KENALOG [Suspect]
     Indication: DERMATITIS CONTACT
     Dosage: KENALOG 40MG/ML  1CC  IM(030)
     Route: 030
     Dates: start: 20070912
  2. MEDROL [Suspect]

REACTIONS (7)
  - ANXIETY [None]
  - CONTUSION [None]
  - DRUG INEFFECTIVE [None]
  - INDURATION [None]
  - INJECTION SITE DISCOMFORT [None]
  - INJECTION SITE REACTION [None]
  - PAIN [None]
